FAERS Safety Report 5248234-0 (Version None)
Quarter: 2007Q1

REPORT INFORMATION
  Report Type: 
  Country: None (occurrence: None)
  Receive Date: 20070227
  Receipt Date: 20060828
  Transmission Date: 20070707
  Serious: No
  Sender: FDA-Public Use
  Company Number: US-BRISTOL-MYERS SQUIBB COMPANY-13490958

PATIENT
  Age: 72 Year
  Sex: Female
  Weight: 86 kg

DRUGS (2)
  1. GLUCOPHAGE [Suspect]
     Indication: DIABETES MELLITUS
     Dates: start: 19880101
  2. TENORMIN [Concomitant]

REACTIONS (4)
  - ABDOMINAL DISTENSION [None]
  - DYSPNOEA [None]
  - HEART RATE IRREGULAR [None]
  - MYALGIA [None]
